FAERS Safety Report 7153395-2 (Version None)
Quarter: 2010Q4

REPORT INFORMATION
  Report Type: 
  Country: None (occurrence: None)
  Receive Date: 20101213
  Receipt Date: 20101130
  Transmission Date: 20110411
  Serious: Yes (Hospitalization)
  Sender: FDA-Public Use
  Company Number: A0680399A

PATIENT
  Sex: Male
  Weight: 3.6 kg

DRUGS (4)
  1. PAXIL [Suspect]
     Indication: DEPRESSION
     Dosage: 20MG PER DAY
     Route: 048
     Dates: start: 19980601, end: 19990601
  2. PRENATAL VITAMINS [Concomitant]
  3. FERROUS SULFATE [Concomitant]
  4. MACRODANTIN [Concomitant]

REACTIONS (6)
  - AORTIC STENOSIS [None]
  - CONGENITAL ANOMALY [None]
  - DRUG EXPOSURE DURING PREGNANCY [None]
  - PATENT DUCTUS ARTERIOSUS [None]
  - PULMONARY VALVE STENOSIS [None]
  - SPEECH DISORDER [None]
